FAERS Safety Report 4641927-5 (Version None)
Quarter: 2005Q2

REPORT INFORMATION
  Report Type: 
  Country: None (occurrence: None)
  Receive Date: 20050421
  Receipt Date: 20050408
  Transmission Date: 20051028
  Serious: Yes (Other)
  Sender: FDA-Public Use
  Company Number: 2005058691

PATIENT
  Age: 24 Year
  Sex: Female
  Weight: 104.3273 kg

DRUGS (2)
  1. BEXTRA [Suspect]
     Indication: HIP FRACTURE
     Dosage: 20 MG (20 MG, 1 IN 1 D), ORAL
     Route: 048
     Dates: start: 20041201
  2. NAPROXEN [Concomitant]

REACTIONS (5)
  - ABSCESS [None]
  - ACNE [None]
  - COMEDONE [None]
  - SKIN INFECTION [None]
  - SKIN REACTION [None]
